FAERS Safety Report 7242264-5 (Version None)
Quarter: 2011Q1

REPORT INFORMATION
  Report Type: 
  Country: None (occurrence: None)
  Receive Date: 20110125
  Receipt Date: 20101229
  Transmission Date: 20110831
  Serious: No
  Sender: FDA-Public Use
  Company Number: US-BAYER-2011-001756

PATIENT
  Age: 42 Year
  Sex: Male
  Weight: 99.773 kg

DRUGS (1)
  1. MAGNEVIST [Suspect]
     Indication: PRODUCT USED FOR UNKNOWN INDICATION
     Dosage: 20 ML, ONCE

REACTIONS (3)
  - RASH ERYTHEMATOUS [None]
  - NASAL DISCOMFORT [None]
  - URTICARIA [None]
